FAERS Safety Report 4314912-0 (Version None)
Quarter: 2004Q1

REPORT INFORMATION
  Report Type: 
  Country: None (occurrence: None)
  Receive Date: 20040310
  Receipt Date: 20040310
  Transmission Date: 20041129
  Serious: Yes (Other)
  Sender: FDA-Public Use
  Company Number: None

PATIENT
  Age: 50 Year
  Sex: Male
  Weight: 127.9144 kg

DRUGS (2)
  1. INDAPAMIDE [Suspect]
     Indication: DERMATITIS
     Dosage: TABLET BID
     Dates: start: 20010101, end: 20040101
  2. ATENOLOL [Concomitant]

REACTIONS (1)
  - RASH VESICULAR [None]
